FAERS Safety Report 25432450 (Version 2)
Quarter: 2025Q3

REPORT INFORMATION
  Report Type: Report from Study
  Country: US (occurrence: US)
  Receive Date: 20250613
  Receipt Date: 20250810
  Transmission Date: 20251021
  Serious: Yes (Other)
  Sender: ALEXION PHARMACEUTICALS
  Company Number: US-AstraZeneca-CH-00889236A

PATIENT
  Sex: Male
  Weight: 60.781 kg

DRUGS (7)
  1. ACALABRUTINIB [Suspect]
     Active Substance: ACALABRUTINIB
     Indication: Chronic lymphocytic leukaemia
     Dosage: 100 MILLIGRAM, QD
     Dates: start: 20250513
  2. ACYCLOVIR [Concomitant]
     Active Substance: ACYCLOVIR
     Route: 065
  3. BUMETANIDE [Concomitant]
     Active Substance: BUMETANIDE
     Route: 065
  4. COREG [Concomitant]
     Active Substance: CARVEDILOL
     Route: 065
  5. HYDRALAZINE [Concomitant]
     Active Substance: HYDRALAZINE HYDROCHLORIDE
     Route: 065
  6. VITAMINS [Concomitant]
     Active Substance: VITAMINS
     Route: 065
  7. VITAMIN D3 [Concomitant]
     Active Substance: CHOLECALCIFEROL
     Route: 065

REACTIONS (5)
  - Contusion [Recovering/Resolving]
  - Weight decreased [Recovering/Resolving]
  - Ageusia [Not Recovered/Not Resolved]
  - Renal impairment [Recovering/Resolving]
  - Haemoglobin decreased [Recovered/Resolved]
